APPROVED DRUG PRODUCT: OLMESARTAN MEDOXOMIL, AMLODIPINE AND HYDROCHLOROTHIAZIDE
Active Ingredient: AMLODIPINE BESYLATE; HYDROCHLOROTHIAZIDE; OLMESARTAN MEDOXOMIL
Strength: EQ 5MG BASE;12.5MG;20MG
Dosage Form/Route: TABLET;ORAL
Application: A210718 | Product #001 | TE Code: AB
Applicant: PIRAMAL HEALTHCARE UK LTD
Approved: May 14, 2025 | RLD: No | RS: No | Type: RX